FAERS Safety Report 14560499 (Version 2)
Quarter: 2018Q1

REPORT INFORMATION
  Report Type: Report from Study
  Country: None (occurrence: CA)
  Receive Date: 20180222
  Receipt Date: 20180227
  Transmission Date: 20180509
  Serious: Yes (Other)
  Sender: FDA-Public Use
  Company Number: CA-ABBVIE-18K-028-2261523-00

PATIENT
  Sex: Female

DRUGS (2)
  1. HUMIRA [Suspect]
     Active Substance: ADALIMUMAB
     Indication: ANKYLOSING SPONDYLITIS
     Route: 058
     Dates: start: 20131222
  2. HUMIRA [Suspect]
     Active Substance: ADALIMUMAB
     Route: 058
     Dates: start: 20180218

REACTIONS (8)
  - Treatment noncompliance [Not Recovered/Not Resolved]
  - Bronchitis [Unknown]
  - Emotional disorder [Not Recovered/Not Resolved]
  - Negative thoughts [Unknown]
  - Suicide attempt [Unknown]
  - Eczema [Not Recovered/Not Resolved]
  - Depression [Unknown]
  - Nasopharyngitis [Not Recovered/Not Resolved]

NARRATIVE: CASE EVENT DATE: 2016
